FAERS Safety Report 8530452 (Version 4)
Quarter: 2013Q2

REPORT INFORMATION
  Report Type: Spontaneous
  Country: US (occurrence: None)
  Receive Date: 20120418
  Receipt Date: 20130409
  Transmission Date: 20140414
  Serious: Yes (Other)
  Sender: FDA-Public Use
  Company Number: ADR-2012-00704

PATIENT
  Sex: Male

DRUGS (2)
  1. LIORESAL [Suspect]
     Indication: MUSCLE SPASTICITY
     Dosage: 600 MCG/DAY
  2. LIORESAL [Suspect]
     Indication: CEREBRAL PALSY
     Dosage: 600 MCG/DAY

REACTIONS (9)
  - DRUG WITHDRAWAL SYNDROME [None]
  - DYSKINESIA [None]
  - OEDEMA PERIPHERAL [None]
  - ERYTHEMA [None]
  - HYPERTONIA [None]
  - MUSCULOSKELETAL STIFFNESS [None]
  - MUSCLE SPASMS [None]
  - FEELING JITTERY [None]
  - PRURITUS [None]
